FAERS Safety Report 22528964 (Version 1)
Quarter: 2023Q2

REPORT INFORMATION
  Report Type: Other
  Country: JP (occurrence: JP)
  Receive Date: 20230607
  Receipt Date: 20230607
  Transmission Date: 20230722
  Serious: Yes (Other)
  Sender: FDA-Public Use
  Company Number: JP-CHUGAI-2023019663

PATIENT
  Age: 54 Year
  Sex: Female

DRUGS (3)
  1. ACTEMRA [Suspect]
     Active Substance: TOCILIZUMAB
     Indication: Rheumatoid arthritis
     Dosage: UNK
     Route: 065
  2. TACROLIMUS [Concomitant]
     Active Substance: TACROLIMUS
     Indication: Rheumatoid arthritis
     Dosage: UNK
     Route: 065
  3. IGURATIMOD [Concomitant]
     Active Substance: IGURATIMOD
     Indication: Rheumatoid arthritis
     Dosage: UNK
     Route: 065

REACTIONS (2)
  - Atypical mycobacterial infection [Recovering/Resolving]
  - Infectious pleural effusion [Recovering/Resolving]
